FAERS Safety Report 12572036 (Version 4)
Quarter: 2016Q4

REPORT INFORMATION
  Report Type: Report from Study
  Country: BR (occurrence: BR)
  Receive Date: 20160719
  Receipt Date: 20161021
  Transmission Date: 20170207
  Serious: Yes (Hospitalization, Other)
  Sender: FDA-Public Use
  Company Number: PHHY2016BR098156

PATIENT
  Sex: Female
  Weight: 41 kg

DRUGS (1)
  1. SANDOSTATIN LAR DEPOT [Suspect]
     Active Substance: OCTREOTIDE ACETATE
     Indication: NEUROENDOCRINE TUMOUR
     Dosage: 30 MG, QMO, EVERY 28 DAYS
     Route: 030
     Dates: start: 201208

REACTIONS (15)
  - Inflammation [Unknown]
  - Underdose [Unknown]
  - Malnutrition [Unknown]
  - Eating disorder [Unknown]
  - Pulmonary mass [Unknown]
  - Arthralgia [Unknown]
  - Needle issue [Unknown]
  - Underweight [Unknown]
  - Adhesion [Unknown]
  - Myalgia [Unknown]
  - Abdominal pain [Recovered/Resolved]
  - Pain [Recovered/Resolved]
  - Weight decreased [Recovering/Resolving]
  - Injection site pain [Unknown]
  - Weight increased [Unknown]
